FAERS Safety Report 10297446 (Version 3)
Quarter: 2014Q3

REPORT INFORMATION
  Report Type: Spontaneous
  Country: DE (occurrence: DE)
  Receive Date: 20140711
  Receipt Date: 20140929
  Transmission Date: 20150326
  Serious: Yes (Other)
  Sender: FDA-Public Use
  Company Number: DE-ROCHE-1432347

PATIENT
  Sex: Female
  Weight: 45 kg

DRUGS (1)
  1. MABTHERA [Suspect]
     Active Substance: RITUXIMAB
     Indication: NEOPLASM
     Route: 058

REACTIONS (2)
  - Necrosis [Recovered/Resolved]
  - Incorrect route of drug administration [Unknown]
